FAERS Safety Report 7878959-X (Version None)
Quarter: 2011Q4

REPORT INFORMATION
  Report Type: 
  Country: None (occurrence: None)
  Receive Date: 20111101
  Receipt Date: 20111020
  Transmission Date: 20120403
  Serious: Yes (Other)
  Sender: FDA-Public Use
  Company Number: PHHY2011MX94023

PATIENT
  Sex: Female

DRUGS (1)
  1. ZOLEDRONOC ACID [Suspect]
     Indication: OSTEOPOROSIS
     Dosage: 5MG/100 ML PER YEAR
     Route: 042
     Dates: start: 20111019

REACTIONS (7)
  - MYALGIA [None]
  - PAIN IN EXTREMITY [None]
  - BONE PAIN [None]
  - HEADACHE [None]
  - PAIN [None]
  - SYNCOPE [None]
  - PYREXIA [None]
